FAERS Safety Report 8026154-6 (Version None)
Quarter: 2012Q1

REPORT INFORMATION
  Report Type: 
  Country: None (occurrence: None)
  Receive Date: 20120105
  Receipt Date: 20111227
  Transmission Date: 20120608
  Serious: Yes (Hospitalization, Other)
  Sender: FDA-Public Use
  Company Number: US-ASTRAZENECA-2010SE37054

PATIENT
  Age: 88 Year
  Sex: Male

DRUGS (1)
  1. NEXIUM [Suspect]
     Route: 048
     Dates: start: 20000101, end: 20040101

REACTIONS (7)
  - GALLBLADDER OBSTRUCTION [None]
  - PANCREAS INFECTION [None]
  - HEART RATE DECREASED [None]
  - EROSIVE OESOPHAGITIS [None]
  - ODYNOPHAGIA [None]
  - DRUG DOSE OMISSION [None]
  - APHAGIA [None]
